FAERS Safety Report 11219692 (Version 1)
Quarter: 2015Q2

REPORT INFORMATION
  Report Type: Spontaneous
  Country: US (occurrence: US)
  Receive Date: 20150625
  Receipt Date: 20150625
  Transmission Date: 20150821
  Serious: Yes (Death, Hospitalization, Other)
  Sender: FDA-Public Use
  Company Number: US-GLAXOSMITHKLINE-US2015090303

PATIENT
  Age: 81 Year
  Sex: Female

DRUGS (7)
  1. LISINOPRIL. [Concomitant]
     Active Substance: LISINOPRIL
  2. AMLODIPINE [Concomitant]
     Active Substance: AMLODIPINE BESYLATE
  3. ATENOLOL. [Concomitant]
     Active Substance: ATENOLOL
  4. ADVAIR DISKUS [Suspect]
     Active Substance: FLUTICASONE PROPIONATE\SALMETEROL XINAFOATE
     Indication: CHRONIC OBSTRUCTIVE PULMONARY DISEASE
     Dosage: 1 PUFF(S), BID
     Route: 055
  5. LASIX [Concomitant]
     Active Substance: FUROSEMIDE
  6. ALBUTEROL. [Concomitant]
     Active Substance: ALBUTEROL
  7. SPIRIVA [Concomitant]
     Active Substance: TIOTROPIUM BROMIDE MONOHYDRATE

REACTIONS (12)
  - Acute respiratory failure [Fatal]
  - Oropharyngeal pain [Unknown]
  - Head injury [Unknown]
  - Chronic obstructive pulmonary disease [Fatal]
  - Viral upper respiratory tract infection [Fatal]
  - Dyspnoea [Unknown]
  - Oxygen saturation decreased [Unknown]
  - Muscular weakness [Unknown]
  - Pneumonia [Unknown]
  - Joint injury [Unknown]
  - Pulmonary oedema [Unknown]
  - Fall [Unknown]

NARRATIVE: CASE EVENT DATE: 20150320
